FAERS Safety Report 21698040 (Version 2)
Quarter: 2023Q1

REPORT INFORMATION
  Report Type: Report from Study
  Country: CN (occurrence: CN)
  Receive Date: 20221208
  Receipt Date: 20230102
  Transmission Date: 20230417
  Serious: Yes (Hospitalization, Other)
  Sender: FDA-Public Use
  Company Number: CN-TAKEDA-2022TUS093518

PATIENT
  Age: 55 Year
  Sex: Male
  Weight: 60 kg

DRUGS (9)
  1. VEDOLIZUMAB [Suspect]
     Active Substance: VEDOLIZUMAB
     Indication: Colitis ulcerative
     Dosage: 300 MILLIGRAM
     Route: 042
     Dates: start: 20220818
  2. CEFUROXIME SODIUM [Concomitant]
     Active Substance: CEFUROXIME SODIUM
     Dosage: 1.5 GRAM
     Route: 062
     Dates: start: 20220921, end: 20220921
  3. ILAPRAZOLE [Concomitant]
     Active Substance: ILAPRAZOLE
     Indication: Chronic gastritis
     Dosage: 5 MILLIGRAM, QD
     Route: 048
     Dates: start: 202210
  4. TEPRENONE [Concomitant]
     Active Substance: TEPRENONE
     Indication: Chronic gastritis
     Dosage: 50 MILLIGRAM, BID
     Route: 048
     Dates: start: 202210
  5. CALCIUM CARBONATE\CHOLECALCIFEROL [Concomitant]
     Active Substance: CALCIUM CARBONATE\CHOLECALCIFEROL
     Indication: Nutritional supplementation
     Dosage: UNK UNK, QD
     Route: 048
     Dates: start: 20220703
  6. MESALAMINE [Concomitant]
     Active Substance: MESALAMINE
     Dosage: UNK
     Dates: start: 202206
  7. DIPHENHYDRAMINE HYDROCHLORIDE [Concomitant]
     Active Substance: DIPHENHYDRAMINE HYDROCHLORIDE
     Indication: Allergy prophylaxis
     Dosage: 20 MILLIGRAM
     Route: 030
     Dates: start: 20220818, end: 20220818
  8. CEFACLOR [Concomitant]
     Active Substance: CEFACLOR
     Indication: Antiinflammatory therapy
     Dosage: 0.5 GRAM, QD
     Route: 048
     Dates: start: 20220923, end: 202210
  9. COMPOUND CODEINE PHOSPHATE AND IBUPROFEN [Concomitant]
     Indication: Postoperative analgesia
     Dosage: UNK UNK, QD
     Route: 048
     Dates: start: 20220923, end: 202210

REACTIONS (5)
  - Hydronephrosis [Recovered/Resolved]
  - Ureterolithiasis [Recovered/Resolved]
  - Benign prostatic hyperplasia [Not Recovered/Not Resolved]
  - Haematuria [Not Recovered/Not Resolved]
  - Hyperuricaemia [Recovered/Resolved]

NARRATIVE: CASE EVENT DATE: 20220905
